FAERS Safety Report 21898135 (Version 3)
Quarter: 2024Q1

REPORT INFORMATION
  Report Type: Other
  Country: CA (occurrence: CA)
  Receive Date: 20230123
  Receipt Date: 20240301
  Transmission Date: 20240410
  Serious: Yes (Hospitalization, Other)
  Sender: FDA-Public Use
  Company Number: CA-PFIZER INC-202300024597

PATIENT
  Age: 53 Year
  Sex: Female

DRUGS (36)
  1. LORAZEPAM [Suspect]
     Active Substance: LORAZEPAM
     Dosage: 1 MG, 1X/DAY
     Route: 065
  2. SOMATROPIN [Suspect]
     Active Substance: SOMATROPIN
     Dosage: UNK
     Route: 065
  3. VARENICLINE TARTRATE [Suspect]
     Active Substance: VARENICLINE TARTRATE
     Dosage: 1 MG, 2X/DAY
     Route: 065
  4. VARENICLINE TARTRATE [Suspect]
     Active Substance: VARENICLINE TARTRATE
     Dosage: 0.5 MG, 1X/DAY
     Route: 065
  5. ESTRADIOL [Suspect]
     Active Substance: ESTRADIOL
     Dosage: 50 UG, 1X/DAY
     Route: 065
  6. ESTRADIOL [Suspect]
     Active Substance: ESTRADIOL
     Dosage: 50 UG, 1X/DAY
     Route: 062
  7. BIFIDOBACTERIUM LONGUM [Suspect]
     Active Substance: BIFIDOBACTERIUM LONGUM
     Dosage: UNK
     Route: 048
  8. BIFIDOBACTERIUM LONGUM [Suspect]
     Active Substance: BIFIDOBACTERIUM LONGUM
     Dosage: UNK
     Route: 065
  9. BUDESONIDE\FORMOTEROL FUMARATE [Suspect]
     Active Substance: BUDESONIDE\FORMOTEROL FUMARATE
     Dosage: 6 UG, 2X/DAY
     Route: 065
  10. BUDESONIDE\FORMOTEROL FUMARATE [Suspect]
     Active Substance: BUDESONIDE\FORMOTEROL FUMARATE
     Dosage: 200 UG, 2X/DAY
     Route: 065
  11. BUDESONIDE\FORMOTEROL FUMARATE [Suspect]
     Active Substance: BUDESONIDE\FORMOTEROL FUMARATE
     Dosage: 1 DF, 2X/DAY
     Route: 065
  12. DOCONEXENT [Suspect]
     Active Substance: DOCONEXENT
     Dosage: 120 MG, 2X/DAY
     Route: 048
  13. ICOSAPENT [Suspect]
     Active Substance: ICOSAPENT
     Dosage: 180 MG, 2X/DAY
     Route: 048
  14. LACTOBACILLUS ACIDOPHILUS [Suspect]
     Active Substance: LACTOBACILLUS ACIDOPHILUS
     Dosage: UNK, 3X/DAY
     Route: 065
  15. LACTOBACILLUS CASEI [Suspect]
     Active Substance: LACTOBACILLUS CASEI
     Dosage: UNK, 3X/DAY
     Route: 065
  16. LACTOBACILLUS RHAMNOSUS [Suspect]
     Active Substance: LACTOBACILLUS RHAMNOSUS
     Dosage: UNK, 3X/DAY
     Route: 065
  17. LINOLEIC ACID [Suspect]
     Active Substance: LINOLEIC ACID
     Dosage: UNK, 3X/DAY
     Route: 048
  18. LINOLEIC ACID [Suspect]
     Active Substance: LINOLEIC ACID
     Dosage: 1 DF, 3X/DAY
     Route: 048
  19. MSM [Suspect]
     Active Substance: DIMETHYL SULFONE
     Dosage: 1000 MG
     Route: 065
  20. PROGESTERONE [Suspect]
     Active Substance: PROGESTERONE
     Dosage: 100 MG, 1X/DAY
     Route: 065
  21. PROGESTERONE [Suspect]
     Active Substance: PROGESTERONE
     Dosage: UNK
     Route: 048
  22. PROGESTERONE [Suspect]
     Active Substance: PROGESTERONE
     Dosage: 100 MG, 1X/DAY
     Route: 030
  23. THIOCTIC ACID [Suspect]
     Active Substance: THIOCTIC ACID
     Dosage: 3.75 MG
     Route: 065
  24. UBIDECARENONE [Suspect]
     Active Substance: UBIDECARENONE
     Dosage: 3.75 MG
     Route: 065
  25. VENLAFAXINE [Suspect]
     Active Substance: VENLAFAXINE HYDROCHLORIDE
     Dosage: 150 MG
     Route: 065
  26. VITAMIN A [Suspect]
     Active Substance: VITAMIN A
     Dosage: 188 UG, 2X/DAY
     Route: 048
  27. VITAMIN C [Suspect]
     Active Substance: ASCORBIC ACID
     Dosage: 15 MG, 2X/DAY
     Route: 048
  28. VITAMIN D NOS [Suspect]
     Active Substance: VITAMIN D NOS
     Dosage: 1000 IU, 1X/DAY
     Route: 048
  29. .ALPHA.-TOCOPHEROL [Suspect]
     Active Substance: .ALPHA.-TOCOPHEROL
     Dosage: 7.5 MG
     Route: 048
  30. DIETARY SUPPLEMENT\PROBIOTICS [Suspect]
     Active Substance: DIETARY SUPPLEMENT\PROBIOTICS NOS
     Dosage: UNK
     Route: 048
  31. DIETARY SUPPLEMENT\PROBIOTICS [Suspect]
     Active Substance: DIETARY SUPPLEMENT\PROBIOTICS NOS
     Dosage: UNK
     Route: 065
  32. DIETARY SUPPLEMENT\PROBIOTICS [Suspect]
     Active Substance: DIETARY SUPPLEMENT\PROBIOTICS NOS
     Dosage: 1 DF, 3X/DAY
     Route: 048
  33. ERGOCALCIFEROL [Suspect]
     Active Substance: ERGOCALCIFEROL
     Dosage: 1000 IU
     Route: 048
  34. FISH OIL [Suspect]
     Active Substance: FISH OIL
     Dosage: 1 DF, 2X/DAY (FISH OIL 600 EPA/300 DHA)
     Route: 048
  35. MSM [Suspect]
     Active Substance: DIMETHYL SULFONE
     Dosage: 1000 MG, 3X/DAY
     Route: 065
  36. VITAMINS NOS [Suspect]
     Active Substance: VITAMINS
     Dosage: 1 DF, 2X/DAY
     Route: 048

REACTIONS (5)
  - Hepatotoxicity [Recovered/Resolved]
  - Drug-induced liver injury [Recovered/Resolved]
  - Hepatic cirrhosis [Recovered/Resolved]
  - Hepatic encephalopathy [Recovered/Resolved]
  - Hepatic necrosis [Recovered/Resolved]
